FAERS Safety Report 7639551-5 (Version None)
Quarter: 2011Q3

REPORT INFORMATION
  Report Type: 
  Country: None (occurrence: None)
  Receive Date: 20110727
  Receipt Date: 20110722
  Transmission Date: 20111222
  Serious: Yes (Hospitalization)
  Sender: FDA-Public Use
  Company Number: JP-GLAXOSMITHKLINE-B0734985A

PATIENT
  Sex: Male

DRUGS (1)
  1. VALTREX [Suspect]
     Indication: HERPES ZOSTER
     Dosage: 6IUAX PER DAY
     Route: 048
     Dates: start: 20110719, end: 20110721

REACTIONS (3)
  - DECREASED APPETITE [None]
  - RENAL DISORDER [None]
  - FEELING ABNORMAL [None]
